FAERS Safety Report 25041999 (Version 1)
Quarter: 2025Q1

REPORT INFORMATION
  Report Type: Spontaneous
  Country: JP (occurrence: JP)
  Receive Date: 20250305
  Receipt Date: 20250305
  Transmission Date: 20250409
  Serious: Yes (Other)
  Sender: ELI LILLY AND COMPANY
  Company Number: JP-ELI_LILLY_AND_COMPANY-JP202503001391

PATIENT
  Age: 77 Year
  Sex: Male

DRUGS (3)
  1. NECITUMUMAB [Suspect]
     Active Substance: NECITUMUMAB
     Indication: Squamous cell carcinoma of lung
     Route: 065
     Dates: start: 20250120
  2. GEMCITABINE [Concomitant]
     Active Substance: GEMCITABINE
     Indication: Squamous cell carcinoma of lung
     Route: 065
     Dates: start: 20250120
  3. CISPLATIN [Concomitant]
     Active Substance: CISPLATIN
     Indication: Squamous cell carcinoma of lung
     Route: 065
     Dates: start: 20250120

REACTIONS (1)
  - Anaemia [Recovered/Resolved]
